FAERS Safety Report 8420092-2 (Version None)
Quarter: 2012Q2

REPORT INFORMATION
  Report Type: 
  Country: None (occurrence: None)
  Receive Date: 20120323
  Receipt Date: 20111221
  Transmission Date: 20120825
  Serious: Yes (Other)
  Sender: FDA-Public Use
  Company Number: 163-21880-11112569

PATIENT
  Age: 70 Year
  Sex: Female
  Weight: 98.8842 kg

DRUGS (2)
  1. REVLIMID [Suspect]
     Indication: MULTIPLE MYELOMA
     Dosage: 25 MG, 1 IN 1 D, PO, 10 MG, 21 DAYS ON 7 OFF, PO
     Route: 048
     Dates: start: 20111013
  2. REVLIMID [Suspect]
     Indication: MULTIPLE MYELOMA
     Dosage: 25 MG, 1 IN 1 D, PO, 10 MG, 21 DAYS ON 7 OFF, PO
     Route: 048
     Dates: start: 20111118

REACTIONS (4)
  - BLOOD MAGNESIUM DECREASED [None]
  - BLOOD CREATININE INCREASED [None]
  - DEEP VEIN THROMBOSIS [None]
  - BLOOD POTASSIUM DECREASED [None]
